FAERS Safety Report 4607561-8 (Version None)
Quarter: 2005Q1

REPORT INFORMATION
  Report Type: 
  Country: None (occurrence: None)
  Receive Date: 20050314
  Receipt Date: 20050301
  Transmission Date: 20050727
  Serious: Yes (Hospitalization)
  Sender: FDA-Public Use
  Company Number: PHRM2005FR00940

PATIENT
  Age: 77 Year
  Sex: Male

DRUGS (9)
  1. ZOMETA [Suspect]
     Indication: METASTASES TO BONE
     Dosage: 1 DF, QD
     Route: 042
     Dates: start: 20050125, end: 20050125
  2. PLITICAN [Concomitant]
     Dosage: 1 DF, QD
     Route: 042
     Dates: start: 20050124, end: 20050127
  3. ARANESP [Concomitant]
     Indication: ANAEMIA
     Dosage: 1 DF, QD
     Route: 058
     Dates: start: 20050124, end: 20050124
  4. FLUOROURACIL [Concomitant]
     Indication: LUNG NEOPLASM MALIGNANT
     Dosage: 500 MG DAILY
     Route: 042
     Dates: start: 20050124, end: 20050127
  5. CLASTOBAN [Concomitant]
     Indication: METASTASES TO BONE
     Dosage: 400 MG, TID
     Route: 048
  6. ELVORINE [Concomitant]
     Indication: LUNG NEOPLASM MALIGNANT
     Dosage: 17 MG DAILY
     Route: 042
     Dates: start: 20050124, end: 20050127
  7. DURAGESIC-100 [Concomitant]
  8. ZOLPIDEM TARTRATE [Concomitant]
  9. PANTOPRAZOLE SODIUM [Concomitant]

REACTIONS (3)
  - EPISTAXIS [None]
  - HAEMOPTYSIS [None]
  - THROMBOCYTOPENIA [None]
